FAERS Safety Report 14021711 (Version 2)
Quarter: 2017Q4

REPORT INFORMATION
  Report Type: Spontaneous
  Country: US (occurrence: US)
  Receive Date: 20170928
  Receipt Date: 20171226
  Transmission Date: 20180321
  Serious: No
  Sender: FDA-Public Use
  Company Number: US-CLOVIS ONCOLOGY-CLO-2017-000999

PATIENT
  Sex: Female

DRUGS (4)
  1. RUBRACA [Suspect]
     Active Substance: RUCAPARIB CAMSYLATE
     Dosage: 550 MG, BID
     Route: 048
     Dates: start: 2017, end: 2017
  2. RUBRACA [Suspect]
     Active Substance: RUCAPARIB CAMSYLATE
     Dosage: 500 MG, BID
     Route: 048
     Dates: start: 2017, end: 20170925
  3. RUBRACA [Suspect]
     Active Substance: RUCAPARIB CAMSYLATE
     Indication: OVARIAN CANCER
     Dosage: 600 MG, BID
     Route: 048
     Dates: start: 2017, end: 2017
  4. RUBRACA [Suspect]
     Active Substance: RUCAPARIB CAMSYLATE
     Dosage: 400 MG, BID
     Route: 048
     Dates: start: 2017, end: 2017

REACTIONS (11)
  - Poor quality sleep [Unknown]
  - Gait disturbance [Unknown]
  - Dysgeusia [Unknown]
  - Accidental underdose [Unknown]
  - Memory impairment [Unknown]
  - Therapy cessation [Unknown]
  - Pain [Unknown]
  - Sensory disturbance [Unknown]
  - Fatigue [Unknown]
  - Adverse event [Unknown]
  - Hypoaesthesia [Unknown]

NARRATIVE: CASE EVENT DATE: 2017
